FAERS Safety Report 24423408 (Version 1)
Quarter: 2024Q4

REPORT INFORMATION
  Report Type: Spontaneous
  Country: US (occurrence: None)
  Receive Date: 20241009
  Receipt Date: 20241009
  Transmission Date: 20250114
  Serious: No
  Sender: Public
  Company Number: None

PATIENT
  Age: 88 Year
  Sex: Female
  Weight: 94.05 kg

DRUGS (1)
  1. DEFINITY [Suspect]
     Active Substance: PERFLUTREN
     Dosage: OTHER FREQUENCY : ONCE AT EXAM TIME;?
     Route: 042

REACTIONS (1)
  - Back pain [None]

NARRATIVE: CASE EVENT DATE: 20241009
